FAERS Safety Report 8135754-4 (Version None)
Quarter: 2012Q1

REPORT INFORMATION
  Report Type: 
  Country: None (occurrence: None)
  Receive Date: 20120214
  Receipt Date: 20120206
  Transmission Date: 20120608
  Serious: Yes (Hospitalization, Other)
  Sender: FDA-Public Use
  Company Number: US-BRISTOL-MYERS SQUIBB COMPANY-16385817

PATIENT
  Age: 49 Year
  Sex: Male
  Weight: 68 kg

DRUGS (3)
  1. PACLITAXEL [Suspect]
     Indication: NON-SMALL CELL LUNG CANCER
     Dosage: D1 AND 22
     Route: 042
     Dates: start: 20100412
  2. CETUXIMAB [Suspect]
     Indication: NON-SMALL CELL LUNG CANCER
     Dosage: LOAD DOSE ON D1;CYC1:250MG/M2 ON D8,15,22,29,36;CYC1+ D1,8,15,22,29,36;CYC2,463MG;06JUL10,HELD:13JUL
     Route: 042
     Dates: start: 20010412
  3. CARBOPLATIN [Suspect]
     Indication: NON-SMALL CELL LUNG CANCER
     Dosage: 1 DF : AUC=6 OVER 15-30 ON D1 AND 22,CYCLE 3
     Route: 042
     Dates: start: 20100412

REACTIONS (4)
  - PERIPHERAL SENSORY NEUROPATHY [None]
  - MUSCULOSKELETAL CHEST PAIN [None]
  - ABDOMINAL PAIN [None]
  - DIARRHOEA [None]
